FAERS Safety Report 21141269 (Version 1)
Quarter: 2022Q3

REPORT INFORMATION
  Report Type: Spontaneous
  Country: JP (occurrence: JP)
  Receive Date: 20220728
  Receipt Date: 20220728
  Transmission Date: 20221027
  Serious: Yes (Other)
  Sender: FDA-Public Use
  Company Number: JP-PFIZER INC-PV202200026507

PATIENT
  Age: 73 Year
  Sex: Male

DRUGS (4)
  1. RIFABUTIN [Suspect]
     Active Substance: RIFABUTIN
     Indication: Atypical mycobacterial infection
     Dosage: 500 MG, DAILY
  2. RIFABUTIN [Suspect]
     Active Substance: RIFABUTIN
     Dosage: 250 MG, DAILY
  3. CLARITHROMYCIN [Concomitant]
     Active Substance: CLARITHROMYCIN
     Indication: Atypical mycobacterial infection
     Dosage: 1000 MG, DAILY
  4. ETHAMBUTOL [Concomitant]
     Active Substance: ETHAMBUTOL HYDROCHLORIDE
     Indication: Atypical mycobacterial infection
     Dosage: 1000 MG, DAILY

REACTIONS (2)
  - Uveitis [Recovered/Resolved]
  - Empyema [Recovered/Resolved]
